FAERS Safety Report 8117963-3 (Version None)
Quarter: 2011Q4

REPORT INFORMATION
  Report Type: 
  Country: None (occurrence: None)
  Receive Date: 20111227
  Receipt Date: 20110527
  Transmission Date: 20120403
  Serious: Yes (Other)
  Sender: FDA-Public Use
  Company Number: PHHY2011US47004

PATIENT
  Age: 66 Year
  Sex: Female

DRUGS (2)
  1. FEMARA [Suspect]
     Dosage: 2.5 MG, EVERY OTHER DAY
  2. LORAZEPAM [Concomitant]

REACTIONS (4)
  - BONE PAIN [None]
  - HAIR DISORDER [None]
  - DEPRESSION [None]
  - HEADACHE [None]
